FAERS Safety Report 15222445 (Version 2)
Quarter: 2018Q3

REPORT INFORMATION
  Report Type: Spontaneous
  Country: US (occurrence: US)
  Receive Date: 20180731
  Receipt Date: 20180829
  Transmission Date: 20181010
  Serious: Yes (Disabling, Other)
  Sender: FDA-Public Use
  Company Number: US-OTSUKA-2018_020717

PATIENT
  Sex: Female

DRUGS (1)
  1. ABILIFY [Suspect]
     Active Substance: ARIPIPRAZOLE
     Indication: MAJOR DEPRESSION
     Dosage: 10 MG, QD
     Route: 065
     Dates: start: 200601, end: 201708

REACTIONS (20)
  - Suicidal ideation [Recovered/Resolved]
  - Anhedonia [Unknown]
  - Compulsive shopping [Recovered/Resolved]
  - Economic problem [Unknown]
  - Compulsive sexual behaviour [Recovered/Resolved]
  - Pain [Unknown]
  - Imprisonment [Unknown]
  - Suicide attempt [Recovered/Resolved]
  - Condition aggravated [Unknown]
  - Injury [Unknown]
  - Theft [Recovered/Resolved]
  - Shoplifting [Recovered/Resolved]
  - Emotional distress [Unknown]
  - Eating disorder [Recovered/Resolved]
  - Obsessive-compulsive disorder [Recovered/Resolved]
  - Bankruptcy [Unknown]
  - Loss of employment [Unknown]
  - Disability [Unknown]
  - Compulsive hoarding [Recovered/Resolved]
  - Anxiety [Unknown]

NARRATIVE: CASE EVENT DATE: 20060205
